FAERS Safety Report 6348397-X (Version None)
Quarter: 2009Q3

REPORT INFORMATION
  Report Type: 
  Country: None (occurrence: None)
  Receive Date: 20090911
  Receipt Date: 20090903
  Transmission Date: 20100115
  Serious: Yes (Hospitalization)
  Sender: FDA-Public Use
  Company Number: DE-BIOGENIDEC-2009BI012339

PATIENT
  Age: 37 Year
  Sex: Female
  Weight: 67 kg

DRUGS (5)
  1. TYSABRI [Suspect]
     Indication: MULTIPLE SCLEROSIS
     Route: 042
     Dates: start: 20070831
  2. GABAPENTIN [Concomitant]
     Route: 048
  3. BACLOFEN [Concomitant]
     Route: 048
  4. OPIPRAMOL [Concomitant]
  5. NOVALGIN [Concomitant]

REACTIONS (1)
  - APPENDICITIS [None]
